FAERS Safety Report 8900799 (Version 1)
Quarter: 2012Q4

REPORT INFORMATION
  Report Type: 
  Country: JP (occurrence: JP)
  Receive Date: 20121109
  Receipt Date: 20121109
  Transmission Date: 20130627
  Serious: Yes (Other)
  Sender: FDA-Public Use
  Company Number: JP-ASTELLAS-2012JP010552

PATIENT
  Age: 56 Year
  Sex: Male
  Weight: 77.4 kg

DRUGS (14)
  1. PROGRAF [Suspect]
     Route: 065
  2. GASTER [Suspect]
     Indication: ABDOMINAL PAIN UPPER
     Dosage: 20 mg, UID/QD
     Route: 048
     Dates: start: 20120622, end: 20120808
  3. AMLODIN [Suspect]
     Indication: HYPERTENSION
     Dosage: 5 mg, UID/QD
     Route: 048
     Dates: start: 20120627, end: 20120808
  4. FLUCONAZOL [Concomitant]
     Route: 048
  5. ACICLOVIN [Concomitant]
     Route: 048
  6. BAKTAR [Concomitant]
     Route: 048
  7. MAGMITT [Concomitant]
     Route: 048
  8. HIRUDOID                           /00723701/ [Concomitant]
     Route: 061
  9. MAGNESIUM SULFATE [Concomitant]
     Route: 065
  10. KCL [Concomitant]
     Route: 065
  11. DENOSINE                           /00784201/ [Concomitant]
     Route: 041
  12. PREDONINE                          /00016203/ [Concomitant]
     Route: 065
  13. CHLOR-TRIMETON [Concomitant]
     Route: 065
  14. SODIUM PHOSPHATE [Concomitant]
     Route: 065

REACTIONS (4)
  - Drug ineffective [Unknown]
  - Acute graft versus host disease [Unknown]
  - Aspartate aminotransferase increased [Recovering/Resolving]
  - Alanine aminotransferase increased [Recovering/Resolving]
